FAERS Safety Report 12816247 (Version 1)
Quarter: 2016Q4

REPORT INFORMATION
  Report Type: Spontaneous
  Country: US (occurrence: US)
  Receive Date: 20161005
  Receipt Date: 20161005
  Transmission Date: 20170207
  Serious: No
  Sender: FDA-Public Use
  Company Number: US-AMGEN-USASP2015133827

PATIENT
  Age: 71 Year
  Sex: Female
  Weight: 80.27 kg

DRUGS (7)
  1. PROLIA [Suspect]
     Active Substance: DENOSUMAB
     Dosage: UNK
     Route: 058
  2. METFORMIN [Concomitant]
     Active Substance: METFORMIN HYDROCHLORIDE
     Indication: INSULIN RESISTANCE
     Dosage: 500 MG, BID
     Route: 048
  3. PRAVASTATIN. [Concomitant]
     Active Substance: PRAVASTATIN
     Indication: BLOOD CHOLESTEROL ABNORMAL
     Dosage: 40 UNK, QD
     Route: 048
  4. PROLIA [Suspect]
     Active Substance: DENOSUMAB
     Indication: OSTEOPOROSIS
     Dosage: 60 MG, Q6MO
     Route: 058
     Dates: start: 20131113, end: 20151113
  5. PROLIA [Suspect]
     Active Substance: DENOSUMAB
     Dosage: UNK
     Route: 058
  6. FLUOXETINE [Concomitant]
     Active Substance: FLUOXETINE HYDROCHLORIDE
     Indication: DEPRESSION
     Dosage: 20 MG, QD
     Route: 048
  7. LOSARTAN. [Concomitant]
     Active Substance: LOSARTAN
     Indication: HYPERTENSION
     Dosage: 50 UNK, QD
     Route: 048

REACTIONS (3)
  - Pruritus [Unknown]
  - Adverse drug reaction [Unknown]
  - Rash [Recovered/Resolved]

NARRATIVE: CASE EVENT DATE: 20151204
